FAERS Safety Report 5869690-0 (Version None)
Quarter: 2008Q3

REPORT INFORMATION
  Report Type: 
  Country: None (occurrence: None)
  Receive Date: 20080829
  Receipt Date: 20080728
  Transmission Date: 20090109
  Serious: No
  Sender: FDA-Public Use
  Company Number: US024210

PATIENT
  Age: 74 Year
  Sex: Male
  Weight: 79.3795 kg

DRUGS (9)
  1. FENTORA [Suspect]
     Indication: INTERVERTEBRAL DISC DEGENERATION
     Dosage: 800 UG AC BUCCAL
     Route: 002
  2. ACTIQ [Concomitant]
  3. PERCOCET [Concomitant]
  4. MEVACOR [Concomitant]
  5. LIBRIUM /00011501/ [Concomitant]
  6. LISINOPRIL [Concomitant]
  7. COUMADIN [Concomitant]
  8. DIGOXIN [Concomitant]
  9. BETAPACE [Concomitant]

REACTIONS (3)
  - DRUG PRESCRIBING ERROR [None]
  - INCORRECT DOSE ADMINISTERED [None]
  - VOMITING [None]
